FAERS Safety Report 4937791-7 (Version None)
Quarter: 2006Q1

REPORT INFORMATION
  Report Type: 
  Country: None (occurrence: None)
  Receive Date: 20060309
  Receipt Date: 20051031
  Transmission Date: 20060701
  Serious: Yes (Death, Hospitalization)
  Sender: FDA-Public Use
  Company Number: US-MERCK-0511USA00357

PATIENT
  Age: 79 Year
  Sex: Male
  Weight: 102 kg

DRUGS (10)
  1. VIOXX [Suspect]
     Indication: RHEUMATOID ARTHRITIS
     Route: 048
     Dates: start: 20030301, end: 20040228
  2. NAPROXEN [Concomitant]
     Route: 065
     Dates: start: 20030319, end: 20031005
  3. LIPITOR [Concomitant]
     Route: 065
     Dates: start: 20030107, end: 20030620
  4. WARFARIN SODIUM [Concomitant]
     Route: 065
     Dates: start: 20030107, end: 20031115
  5. FUROSEMIDE [Concomitant]
     Route: 065
     Dates: start: 20030107, end: 20031218
  6. POTASSIUM (UNSPECIFIED) [Concomitant]
     Route: 065
     Dates: start: 20021206, end: 20031218
  7. ZOCOR [Concomitant]
     Route: 065
     Dates: start: 20030527, end: 20031218
  8. BEXTRA [Concomitant]
     Route: 065
     Dates: start: 20030915, end: 20031115
  9. DIGOXIN [Concomitant]
     Route: 065
     Dates: start: 20030915, end: 20031115
  10. TOPROL-XL [Concomitant]
     Route: 065
     Dates: start: 20030107, end: 20031218

REACTIONS (2)
  - CEREBROVASCULAR ACCIDENT [None]
  - TRANSIENT ISCHAEMIC ATTACK [None]
